FAERS Safety Report 8422465-0 (Version None)
Quarter: 2012Q2

REPORT INFORMATION
  Report Type: 
  Country: None (occurrence: None)
  Receive Date: 20120608
  Receipt Date: 20120606
  Transmission Date: 20120825
  Serious: Yes (Other)
  Sender: FDA-Public Use
  Company Number: US-PFIZER INC-2012136788

PATIENT
  Sex: Female
  Weight: 72.562 kg

DRUGS (16)
  1. VITAMIN D [Concomitant]
     Dosage: UNK
  2. MORPHINE [Concomitant]
     Indication: NAUSEA
  3. IBUPROFEN [Concomitant]
     Indication: BACK PAIN
  4. CALCIUM W/MAGNESIUM [Concomitant]
     Dosage: UNK
  5. MORPHINE [Concomitant]
  6. IBUPROFEN [Concomitant]
     Indication: NAUSEA
  7. CHANTIX [Suspect]
     Indication: SMOKING CESSATION THERAPY
     Dosage: 0.5 MG, 1X/DAY
     Route: 048
     Dates: start: 20100101, end: 20100101
  8. CHANTIX [Suspect]
     Dosage: 0.5 MG, 1X/DAY
     Route: 048
     Dates: start: 20120501
  9. MORPHINE [Concomitant]
  10. MORPHINE [Concomitant]
     Indication: PAIN
     Dosage: UNK
  11. IBUPROFEN [Concomitant]
     Indication: PAIN
  12. IBUPROFEN [Concomitant]
  13. MORPHINE [Concomitant]
     Indication: BACK PAIN
  14. ASCORBIC ACID [Concomitant]
     Dosage: UNK
  15. IBUPROFEN [Concomitant]
  16. VITAMIN D [Concomitant]
     Dosage: UNK

REACTIONS (3)
  - FALL [None]
  - DRUG INEFFECTIVE [None]
  - UPPER LIMB FRACTURE [None]
